FAERS Safety Report 12250356 (Version 1)
Quarter: 2016Q2

REPORT INFORMATION
  Report Type: Spontaneous
  Country: US (occurrence: US)
  Receive Date: 20160408
  Receipt Date: 20160408
  Transmission Date: 20160815
  Serious: Yes (Hospitalization, Other)
  Sender: FDA-Public Use
  Company Number: US-ROXANE LABORATORIES, INC.-2016-RO-00611RO

PATIENT
  Sex: Female

DRUGS (1)
  1. LITHIUM CARBONATE CAPSULES USP, 150 MG [Suspect]
     Active Substance: LITHIUM CARBONATE
     Indication: BIPOLAR DISORDER
     Route: 065

REACTIONS (2)
  - Thyrotoxic crisis [Recovered/Resolved]
  - Antipsychotic drug level above therapeutic [Recovered/Resolved]
